FAERS Safety Report 9787998 (Version 1)
Quarter: 2013Q4

REPORT INFORMATION
  Report Type: Spontaneous
  Country: US (occurrence: None)
  Receive Date: 20131227
  Receipt Date: 20131227
  Transmission Date: 20140711
  Serious: No
  Sender: FDA-Public Use
  Company Number: None

PATIENT
  Age: 60 Year
  Sex: Female
  Weight: 54.43 kg

DRUGS (1)
  1. NEILMED (SALINE NASAL SOLUTION [Suspect]

REACTIONS (3)
  - Vertigo [None]
  - Gait disturbance [None]
  - Middle ear effusion [None]
